FAERS Safety Report 6053228-1 (Version None)
Quarter: 2009Q1

REPORT INFORMATION
  Report Type: 
  Country: None (occurrence: None)
  Receive Date: 20090123
  Receipt Date: 20090107
  Transmission Date: 20090719
  Serious: Yes (Other)
  Sender: FDA-Public Use
  Company Number: 8031451

PATIENT
  Age: 31 Year
  Sex: Female
  Weight: 59.09 kg

DRUGS (5)
  1. XYZAL [Suspect]
     Indication: SINUSITIS
     Dosage: 5 MG / D PO
     Route: 048
     Dates: start: 20080228, end: 20080305
  2. TUSSIONEX [Suspect]
     Indication: SINUSITIS
     Dosage: 5 ML 2/D PO
     Route: 048
     Dates: start: 20080228, end: 20080305
  3. CORICIDIN [Suspect]
     Indication: SINUSITIS
     Dosage: 2/D PO
     Route: 048
     Dates: start: 20080228, end: 20080305
  4. CEPHALEXIN [Suspect]
     Indication: SINUSITIS
     Dosage: 500 MG 4/D PO
     Route: 048
     Dates: start: 20080228, end: 20080305
  5. LOPRESSOR [Concomitant]

REACTIONS (8)
  - DEPRESSED LEVEL OF CONSCIOUSNESS [None]
  - DYSPNOEA [None]
  - HEADACHE [None]
  - HYPERHIDROSIS [None]
  - HYPERSENSITIVITY [None]
  - MENTAL DISORDER [None]
  - NAUSEA [None]
  - RASH [None]
